FAERS Safety Report 8089476-9 (Version None)
Quarter: 2012Q1

REPORT INFORMATION
  Report Type: 
  Country: None (occurrence: None)
  Receive Date: 20120128
  Receipt Date: 20110629
  Transmission Date: 20120608
  Serious: No
  Sender: FDA-Public Use
  Company Number: US-ABBOTT-11P-163-0835025-00

PATIENT
  Sex: Male
  Weight: 90.8 kg

DRUGS (3)
  1. HUMIRA [Suspect]
     Route: 058
     Dates: start: 20110201
  2. VITAMIN TAB [Concomitant]
     Indication: PRODUCT USED FOR UNKNOWN INDICATION
  3. HUMIRA [Suspect]
     Indication: CROHN'S DISEASE
     Route: 058
     Dates: start: 20090801, end: 20100201

REACTIONS (5)
  - PYREXIA [None]
  - JOINT SWELLING [None]
  - BACK PAIN [None]
  - COLONIC STENOSIS [None]
  - ABDOMINAL PAIN [None]
